FAERS Safety Report 5964323-7 (Version None)
Quarter: 2008Q4

REPORT INFORMATION
  Report Type: 
  Country: None (occurrence: None)
  Receive Date: 20081124
  Receipt Date: 20081112
  Transmission Date: 20090506
  Serious: Yes (Hospitalization)
  Sender: FDA-Public Use
  Company Number: IT-PFIZER INC-2008028663

PATIENT
  Sex: Male
  Weight: 85 kg

DRUGS (9)
  1. SU-011,248 [Suspect]
     Indication: METASTATIC RENAL CELL CARCINOMA
     Route: 048
     Dates: start: 20060113, end: 20071114
  2. CORTONE [Concomitant]
     Route: 048
     Dates: start: 20010606
  3. OMEPRAZOLE [Concomitant]
     Route: 048
     Dates: start: 20060112
  4. EUTIROX [Concomitant]
     Route: 048
     Dates: start: 20071129
  5. TORVAST [Concomitant]
     Route: 048
     Dates: end: 20071214
  6. TRIATEC [Concomitant]
     Route: 048
     Dates: end: 20071214
  7. CATAPRESAN [Concomitant]
     Route: 048
     Dates: start: 20060612
  8. INDERAL [Concomitant]
     Route: 048
     Dates: start: 20060908, end: 20071214
  9. IMOVANE [Concomitant]
     Route: 048
     Dates: start: 20060418, end: 20071214

REACTIONS (3)
  - GENERAL PHYSICAL HEALTH DETERIORATION [None]
  - HYPOTHYROIDISM [None]
  - OEDEMA [None]
